FAERS Safety Report 5925266-8 (Version None)
Quarter: 2008Q3

REPORT INFORMATION
  Report Type: 
  Country: None (occurrence: None)
  Receive Date: 20080909
  Receipt Date: 20080103
  Transmission Date: 20090109
  Serious: Yes (Other)
  Sender: FDA-Public Use
  Company Number: 163-20785-07090423

PATIENT
  Age: 57 Year
  Sex: Male

DRUGS (6)
  1. THALOMID [Suspect]
     Indication: MULTIPLE MYELOMA
     Dosage: 50 MG, 1 IN 1 D, ORAL : 100 MG, 1 IN 1 D, ORAL : 200 MG, DAILY, ORAL
     Route: 048
     Dates: start: 20051101, end: 20060103
  2. THALOMID [Suspect]
     Indication: STEM CELL TRANSPLANT
     Dosage: 50 MG, 1 IN 1 D, ORAL : 100 MG, 1 IN 1 D, ORAL : 200 MG, DAILY, ORAL
     Route: 048
     Dates: start: 20051101, end: 20060103
  3. THALOMID [Suspect]
     Indication: MULTIPLE MYELOMA
     Dosage: 50 MG, 1 IN 1 D, ORAL : 100 MG, 1 IN 1 D, ORAL : 200 MG, DAILY, ORAL
     Route: 048
     Dates: start: 20061213, end: 20070305
  4. THALOMID [Suspect]
     Indication: STEM CELL TRANSPLANT
     Dosage: 50 MG, 1 IN 1 D, ORAL : 100 MG, 1 IN 1 D, ORAL : 200 MG, DAILY, ORAL
     Route: 048
     Dates: start: 20061213, end: 20070305
  5. THALOMID [Suspect]
     Indication: MULTIPLE MYELOMA
     Dosage: 50 MG, 1 IN 1 D, ORAL : 100 MG, 1 IN 1 D, ORAL : 200 MG, DAILY, ORAL
     Route: 048
     Dates: start: 20070306, end: 20070725
  6. THALOMID [Suspect]
     Indication: STEM CELL TRANSPLANT
     Dosage: 50 MG, 1 IN 1 D, ORAL : 100 MG, 1 IN 1 D, ORAL : 200 MG, DAILY, ORAL
     Route: 048
     Dates: start: 20070306, end: 20070725

REACTIONS (6)
  - AGITATION [None]
  - ANXIETY [None]
  - DEEP VEIN THROMBOSIS [None]
  - DEPRESSION [None]
  - PULMONARY EMBOLISM [None]
  - TREMOR [None]
